FAERS Safety Report 9026296 (Version 1)
Quarter: 2012Q4

REPORT INFORMATION
  Report Type: Spontaneous
  Country: US (occurrence: None)
  Receive Date: 20121218
  Receipt Date: 20121218
  Transmission Date: 20130627
  Serious: Yes (Other)
  Sender: FDA-Public Use
  Company Number: None

PATIENT
  Age: 84 Year
  Sex: Female

DRUGS (1)
  1. EYLEA 2MG - 0.05 ML- REGENERON [Suspect]
     Indication: WET MACULAR DEGENERATION
     Dosage: 2mg every 6-8 - weeks Opthalmic
     Route: 047
     Dates: start: 20120208, end: 20120823

REACTIONS (1)
  - Uveitis [None]
